FAERS Safety Report 19093371 (Version 11)
Quarter: 2022Q3

REPORT INFORMATION
  Report Type: Report from Study
  Country: FR (occurrence: None)
  Receive Date: 20210405
  Receipt Date: 20220805
  Transmission Date: 20221026
  Serious: Yes (Hospitalization, Disabling)
  Sender: FDA-Public Use
  Company Number: FR-ROCHE-2797771

PATIENT
  Age: 68 Year
  Sex: Male
  Weight: 71 kg

DRUGS (18)
  1. ATEZOLIZUMAB [Suspect]
     Active Substance: ATEZOLIZUMAB
     Indication: Bladder transitional cell carcinoma
     Dosage: ON 17/SEP/2020, HE RECEIVED LAST DOSE OF ATEZOLIZUMAB (1200 MG) PRIOR TO ONSET OF SERIOUS ADVERSE EV
     Route: 041
     Dates: start: 20190926, end: 20200917
  2. ATEZOLIZUMAB [Suspect]
     Active Substance: ATEZOLIZUMAB
     Indication: Bladder transitional cell carcinoma
  3. BCG-MEDAC [Suspect]
     Active Substance: BACILLUS CALMETTE-GUERIN ANTIGEN, UNSPECIFIED SUBSTRAIN
     Indication: Bladder transitional cell carcinoma
     Dosage: ON 28/SEP/2020, HE RECEIVED LAST DOSE OF BCG (50 ML) PRIOR TO ONSET OF SERIOUS ADVERSE EVENT.?CUMULA
     Route: 043
     Dates: start: 20190925, end: 20200928
  4. BCG-MEDAC [Suspect]
     Active Substance: BACILLUS CALMETTE-GUERIN ANTIGEN, UNSPECIFIED SUBSTRAIN
     Indication: Bladder transitional cell carcinoma
  5. PLAVIX [Concomitant]
     Active Substance: CLOPIDOGREL BISULFATE
     Indication: Myocardial ischaemia
     Route: 048
     Dates: start: 1985
  6. AMLODIPINE BESYLATE [Concomitant]
     Active Substance: AMLODIPINE BESYLATE
     Indication: Hypertension
     Route: 048
     Dates: start: 1985
  7. METFORMIN [Concomitant]
     Active Substance: METFORMIN HYDROCHLORIDE
     Indication: Diabetes mellitus
     Dates: start: 2017
  8. SIMVASTATIN [Concomitant]
     Active Substance: SIMVASTATIN
     Indication: Dyslipidaemia
     Route: 048
     Dates: start: 1985
  9. SITAGLIPTIN PHOSPHATE [Concomitant]
     Active Substance: SITAGLIPTIN PHOSPHATE
     Indication: Diabetes mellitus
     Route: 048
     Dates: start: 2017
  10. TAMSULOSIN [Concomitant]
     Active Substance: TAMSULOSIN
     Route: 048
     Dates: start: 2019
  11. BISOPROLOL FUMARATE [Concomitant]
     Active Substance: BISOPROLOL FUMARATE
     Route: 048
     Dates: start: 1985
  12. SILODOSIN [Concomitant]
     Active Substance: SILODOSIN
     Indication: Prostatomegaly
     Route: 048
     Dates: start: 2019
  13. TROSPIUM CHLORIDE [Concomitant]
     Active Substance: TROSPIUM CHLORIDE
     Route: 048
     Dates: start: 2019
  14. LEVOTHYROXINE [Concomitant]
     Active Substance: LEVOTHYROXINE
     Indication: Hypothyroidism
     Route: 048
     Dates: start: 20200220
  15. CLOBETASOL PROPIONATE [Concomitant]
     Active Substance: CLOBETASOL PROPIONATE
     Indication: Eczema
     Dates: start: 20210107
  16. ZINC GLUCONATE [Concomitant]
     Active Substance: ZINC GLUCONATE
     Indication: Eczema
     Route: 048
     Dates: start: 20210107
  17. DAPSONE [Concomitant]
     Active Substance: DAPSONE
     Indication: Eczema
     Route: 048
     Dates: start: 20210107
  18. ZOLPIDEM [Concomitant]
     Active Substance: ZOLPIDEM TARTRATE
     Route: 048

REACTIONS (2)
  - Scleroderma [Not Recovered/Not Resolved]
  - Motor dysfunction [Recovered/Resolved]

NARRATIVE: CASE EVENT DATE: 20210316
